FAERS Safety Report 21798167 (Version 5)
Quarter: 2023Q1

REPORT INFORMATION
  Report Type: Spontaneous
  Country: CA (occurrence: CA)
  Receive Date: 20221230
  Receipt Date: 20230320
  Transmission Date: 20230418
  Serious: Yes (Hospitalization, Other)
  Sender: FDA-Public Use
  Company Number: CA-PFIZER INC-202200410924

PATIENT
  Age: 54 Year
  Sex: Female
  Weight: 82 kg

DRUGS (4)
  1. RUXIENCE [Suspect]
     Active Substance: RITUXIMAB-PVVR
     Indication: Systemic lupus erythematosus
     Dosage: 1000 MG, DAY 1 AND DAY 15
     Route: 042
  2. RUXIENCE [Suspect]
     Active Substance: RITUXIMAB-PVVR
     Indication: Rheumatoid arthritis
     Dosage: 1000 MG DAY 1, DAY 15TO BE ADMINISTERED OVER 8 HOURS
     Route: 042
     Dates: start: 20220530
  3. RUXIENCE [Suspect]
     Active Substance: RITUXIMAB-PVVR
     Dosage: 1000 MG DAY 1, DAY 15TO BE ADMINISTERED OVER 8 HOURS
     Route: 042
     Dates: start: 20220530, end: 20220714
  4. RUXIENCE [Suspect]
     Active Substance: RITUXIMAB-PVVR
     Dosage: 1000 MG DAY 1, DAY 15TO BE ADMINISTERED OVER 8 HOURS
     Route: 042
     Dates: start: 20220714

REACTIONS (19)
  - Abdominal pain upper [Not Recovered/Not Resolved]
  - Renal disorder [Unknown]
  - Pancreatic carcinoma metastatic [Not Recovered/Not Resolved]
  - Off label use [Unknown]
  - Intentional product use issue [Unknown]
  - Vulvovaginal pruritus [Recovered/Resolved]
  - Asthenia [Unknown]
  - Abdominal distension [Unknown]
  - Erythema [Unknown]
  - Eye swelling [Unknown]
  - Back pain [Recovered/Resolved]
  - Arthralgia [Not Recovered/Not Resolved]
  - Pain in extremity [Not Recovered/Not Resolved]
  - Vulvovaginal pain [Unknown]
  - Dyspareunia [Unknown]
  - Vaginal infection [Recovering/Resolving]
  - Pruritus [Recovering/Resolving]
  - Vulvovaginal pruritus [Recovered/Resolved]
  - Malaise [Not Recovered/Not Resolved]

NARRATIVE: CASE EVENT DATE: 20220101
